FAERS Safety Report 7592003-3 (Version None)
Quarter: 2011Q3

REPORT INFORMATION
  Report Type: 
  Country: None (occurrence: None)
  Receive Date: 20110705
  Receipt Date: 20110705
  Transmission Date: 20111222
  Serious: Yes (Other)
  Sender: FDA-Public Use
  Company Number: None

PATIENT
  Age: 53 Year
  Sex: Female
  Weight: 62.5964 kg

DRUGS (3)
  1. ZOLPIDEM TARTRATE [Suspect]
     Indication: LYME DISEASE
     Dosage: 10 MGS PER NIGHT 1 PER DAY PO
     Route: 048
     Dates: start: 20110301, end: 20110601
  2. ZOLPIDEM TARTRATE [Suspect]
     Indication: INSOMNIA
     Dosage: 10 MGS PER NIGHT 1 PER DAY PO
     Route: 048
     Dates: start: 20110301, end: 20110601
  3. ZOLPIDEM TARTRATE [Suspect]
     Indication: POST-TRAUMATIC STRESS DISORDER
     Dosage: 10 MGS PER NIGHT 1 PER DAY PO
     Route: 048
     Dates: start: 20110301, end: 20110601

REACTIONS (4)
  - PRODUCT SUBSTITUTION ISSUE [None]
  - PRODUCT FORMULATION ISSUE [None]
  - INSOMNIA [None]
  - DRUG INEFFECTIVE [None]
